FAERS Safety Report 5060072-0 (Version None)
Quarter: 2006Q2

REPORT INFORMATION
  Report Type: 
  Country: None (occurrence: None)
  Receive Date: 20060630
  Receipt Date: 20060315
  Transmission Date: 20061013
  Serious: Yes (Other)
  Sender: FDA-Public Use
  Company Number: 440224

PATIENT
  Age: 52 Year
  Sex: Female

DRUGS (6)
  1. MYCOPHENOLATE MOFETIL [Suspect]
     Indication: DERMATITIS ATOPIC
     Dosage: 500 MG 2 PER DAY
  2. PIMECROLIMUS (PIMECROLIMUS) [Concomitant]
  3. CONJUGATED ESTROGENS (ESTROGENS, CONJUGATED) [Concomitant]
  4. FEXOFENADINE (FEXOFENADINE HYDROCHLORIDE) [Concomitant]
  5. CETIRIZINE (CETIAZINE HYDROCHLORIDE) [Concomitant]
  6. VALSARTAN [Concomitant]

REACTIONS (2)
  - ALANINE AMINOTRANSFERASE INCREASED [None]
  - ASPARTATE AMINOTRANSFERASE INCREASED [None]
